FAERS Safety Report 23234984 (Version 1)
Quarter: 2023Q4

REPORT INFORMATION
  Report Type: Spontaneous
  Country: NO (occurrence: NO)
  Receive Date: 20231128
  Receipt Date: 20231128
  Transmission Date: 20240109
  Serious: Yes (Hospitalization)
  Sender: FDA-Public Use
  Company Number: None

PATIENT
  Age: 70 Year
  Sex: Male

DRUGS (2)
  1. OXALIPLATIN [Suspect]
     Active Substance: OXALIPLATIN
     Indication: Chemotherapy
     Dosage: INFUSION DAY 1 EVERY 3 WEEKS
     Route: 042
     Dates: start: 20231025, end: 20231025
  2. CAPECITABINE [Suspect]
     Active Substance: CAPECITABINE
     Indication: Chemotherapy
     Dosage: X 2, DAY 1-14 FOLLOWED BY 1 WEEK TREATMENT BREAK BEFORE RESTART OF A NEW ROUND OF TREATMENT.
     Route: 048
     Dates: start: 20231025, end: 20231029

REACTIONS (1)
  - Acute myocardial infarction [Recovered/Resolved]

NARRATIVE: CASE EVENT DATE: 20231029
